FAERS Safety Report 24906165 (Version 1)
Quarter: 2025Q1

REPORT INFORMATION
  Report Type: Spontaneous
  Country: US (occurrence: None)
  Receive Date: 20250129
  Receipt Date: 20250129
  Transmission Date: 20250409
  Serious: Yes (unspecified)
  Sender: FDA-CTU
  Company Number: None

PATIENT
  Age: 59 Year
  Sex: Male
  Weight: 84.4 kg

DRUGS (2)
  1. NEXTERONE [Suspect]
     Active Substance: AMIODARONE HYDROCHLORIDE
     Indication: Ventricular tachycardia
     Route: 041
     Dates: start: 20241217, end: 20241221
  2. Amidorone [Concomitant]

REACTIONS (1)
  - Injection site extravasation [None]

NARRATIVE: CASE EVENT DATE: 20250120
